FAERS Safety Report 24896822 (Version 3)
Quarter: 2025Q2

REPORT INFORMATION
  Report Type: Spontaneous
  Country: US (occurrence: US)
  Receive Date: 20250128
  Receipt Date: 20250617
  Transmission Date: 20250716
  Serious: No
  Sender: ALEXION PHARMACEUTICALS
  Company Number: US-AstraZeneca-CH-00790184AP

PATIENT
  Age: 72 Year

DRUGS (1)
  1. BEVESPI AEROSPHERE [Suspect]
     Active Substance: FORMOTEROL FUMARATE\GLYCOPYRROLATE
     Route: 065

REACTIONS (7)
  - Product dose omission issue [Unknown]
  - Drug delivery system malfunction [Unknown]
  - Wrong technique in product usage process [Unknown]
  - Incorrect dose administered by device [Unknown]
  - Anxiety [Unknown]
  - Device use issue [Unknown]
  - Intentional product misuse [Unknown]
